FAERS Safety Report 17033050 (Version 3)
Quarter: 2022Q3

REPORT INFORMATION
  Report Type: Report from Study
  Country: DE (occurrence: DE)
  Receive Date: 20191114
  Receipt Date: 20220927
  Transmission Date: 20221027
  Serious: Yes (Other)
  Sender: FDA-Public Use
  Company Number: DE-GILEAD-2017-0312411

PATIENT
  Age: 30 Year
  Sex: Male
  Weight: 76 kg

DRUGS (24)
  1. RIBAVIRIN [Suspect]
     Active Substance: RIBAVIRIN
     Dosage: 1000 MILLIGRAM, QD
     Route: 048
     Dates: start: 20120524, end: 20120802
  2. RIBAVIRIN [Suspect]
     Active Substance: RIBAVIRIN
     Dosage: 1 (UNITS NOT REPORTED), QD
     Dates: start: 20120803, end: 20130425
  3. NORVIR [Suspect]
     Active Substance: RITONAVIR
     Indication: HIV infection
     Dosage: 100 MILLIGRAM, QD
     Route: 048
     Dates: start: 2013, end: 20160720
  4. NORVIR [Suspect]
     Active Substance: RITONAVIR
     Dosage: 20 MILLIGRAM, QD
     Route: 048
     Dates: start: 2013, end: 20160720
  5. NORVIR [Suspect]
     Active Substance: RITONAVIR
     Indication: HIV infection
     Dosage: CUMULATIVE DOSE TO FIRST REACTION: 98658.76 MG 100 MG, QD
     Route: 048
     Dates: start: 20100101
  6. COPEGUS [Suspect]
     Active Substance: RIBAVIRIN
     Indication: Chronic hepatitis C
     Dosage: CUMULATIVE DOSE TO FIRST REACTION: 103473.69 MG 800 MG, QD
     Route: 048
     Dates: start: 20120803, end: 20130425
  7. COPEGUS [Suspect]
     Active Substance: RIBAVIRIN
     Dosage: 1000 MILLIGRAM, QD
     Route: 048
     Dates: start: 20120803, end: 20130425
  8. COPEGUS [Suspect]
     Active Substance: RIBAVIRIN
     Indication: Chronic hepatitis C
     Dosage: CUMULATIVE DOSE TO FIRST REACTION: 103473.69 MG, 1000 MG, QD
     Route: 048
     Dates: start: 20120524, end: 20120802
  9. TRUVADA [Suspect]
     Active Substance: EMTRICITABINE\TENOFOVIR DISOPROXIL FUMARATE
     Indication: HIV infection
     Dosage: 200 MG, QD
     Route: 048
     Dates: start: 20100101, end: 20160720
  10. PEGASYS [Suspect]
     Active Substance: PEGINTERFERON ALFA-2A
     Indication: Chronic hepatitis C
     Dosage: 180 MICROGRAM, QWK
     Route: 058
     Dates: start: 20120524, end: 20130425
  11. TELAPREVIR [Suspect]
     Active Substance: TELAPREVIR
     Indication: Chronic hepatitis C
     Dosage: 2250 MILLIGRAM, QD
     Route: 048
     Dates: start: 20120524, end: 20120816
  12. ATAZANAVIR SULFATE [Suspect]
     Active Substance: ATAZANAVIR SULFATE
     Indication: HIV infection
     Dosage: 1000 MILLIGRAM, QD
     Route: 048
     Dates: start: 20120524, end: 20120802
  13. ATAZANAVIR SULFATE [Suspect]
     Active Substance: ATAZANAVIR SULFATE
     Dosage: 800 MILLIGRAM, QD
     Route: 048
     Dates: start: 20120803, end: 20130425
  14. ATAZANAVIR SULFATE [Suspect]
     Active Substance: ATAZANAVIR SULFATE
     Indication: HIV infection
     Dosage: 1DF=200 UNIT NOS CUMULATIVE DOSE TO FIRST REACTION 262500 MG, 300MG, QD
     Route: 048
     Dates: start: 20100101, end: 20160720
  15. EMTRICITABINE\TENOFOVIR DISOPROXIL FUMARATE [Suspect]
     Active Substance: EMTRICITABINE\TENOFOVIR DISOPROXIL FUMARATE
     Indication: HIV infection
     Dosage: CUMULATIVE DOSE TO FIRST REACTION: 174926.88 MG 200 MG, QD
     Route: 048
     Dates: start: 20100101, end: 20160720
  16. ACETYLCYSTEINE [Concomitant]
     Active Substance: ACETYLCYSTEINE
     Indication: Product used for unknown indication
     Dosage: 600 MILLIGRAM
     Route: 065
  17. ACETYLCYSTEINE [Concomitant]
     Active Substance: ACETYLCYSTEINE
     Dosage: 600 MILLIGRAM
     Dates: start: 20130314
  18. BETAGALEN [Concomitant]
     Indication: Hepatitis C
     Dosage: UNK
     Route: 065
     Dates: start: 20120605
  19. SUBUTEX [Concomitant]
     Active Substance: BUPRENORPHINE HYDROCHLORIDE
     Indication: Product used for unknown indication
     Dosage: 4 MILLIGRAM
     Route: 065
  20. CITALOPRAM [Concomitant]
     Active Substance: CITALOPRAM HYDROBROMIDE
     Indication: Drug dependence
     Dosage: 20 MILLIGRAM
     Route: 065
  21. CITALOPRAM [Concomitant]
     Active Substance: CITALOPRAM HYDROBROMIDE
     Dosage: 40 MILLIGRAM
     Route: 065
     Dates: start: 20120621, end: 20130601
  22. CITALOPRAM [Concomitant]
     Active Substance: CITALOPRAM HYDROBROMIDE
     Dosage: 40 MILLIGRAM
     Route: 065
     Dates: start: 20121220
  23. AZITHROMYCIN [Concomitant]
     Active Substance: AZITHROMYCIN
     Indication: Product used for unknown indication
     Dosage: 500 MILLIGRAM, QD
     Route: 065
     Dates: start: 20130603, end: 20130605
  24. METAMIZOLE SODIUM [Concomitant]
     Active Substance: METAMIZOLE SODIUM
     Indication: Product used for unknown indication
     Dosage: UNK, PRN; FORMULATION ALSO REPORTED AS ORAL DROPS
     Route: 048
     Dates: start: 20121221

REACTIONS (25)
  - Incorrect dose administered [Unknown]
  - Alanine aminotransferase increased [Not Recovered/Not Resolved]
  - Nausea [Recovered/Resolved]
  - Taste disorder [Not Recovered/Not Resolved]
  - Laboratory test abnormal [Unknown]
  - Fatigue [Recovered/Resolved]
  - Restlessness [Recovered/Resolved]
  - Headache [Recovered/Resolved]
  - Pruritus [Recovered/Resolved]
  - Anaemia [Not Recovered/Not Resolved]
  - Depressed mood [Not Recovered/Not Resolved]
  - Skin irritation [Not Recovered/Not Resolved]
  - Drug dependence [Not Recovered/Not Resolved]
  - Influenza like illness [Recovered/Resolved]
  - Sinusitis [Recovered/Resolved]
  - Withdrawal syndrome [Not Recovered/Not Resolved]
  - Dizziness [Recovered/Resolved]
  - Pruritus [Recovering/Resolving]
  - Vertigo [Recovered/Resolved]
  - Dry skin [Not Recovered/Not Resolved]
  - Oral herpes [Recovered/Resolved]
  - Impaired healing [Recovered/Resolved]
  - Nasopharyngitis [Recovered/Resolved]
  - Incorrect dosage administered [Unknown]
  - Wrong dose [Unknown]

NARRATIVE: CASE EVENT DATE: 20120524
